FAERS Safety Report 14102166 (Version 2)
Quarter: 2018Q3

REPORT INFORMATION
  Report Type: Spontaneous
  Country: US (occurrence: US)
  Receive Date: 20171018
  Receipt Date: 20180809
  Transmission Date: 20181010
  Serious: No
  Sender: FDA-Public Use
  Company Number: US-PFIZER INC-2017450483

PATIENT
  Age: 78 Year
  Sex: Female
  Weight: 71.21 kg

DRUGS (2)
  1. LYRICA [Suspect]
     Active Substance: PREGABALIN
     Dosage: 75 MG, TAKING TWO A DAY
     Dates: start: 201710, end: 201710
  2. LYRICA [Suspect]
     Active Substance: PREGABALIN
     Indication: PSYCHOMOTOR HYPERACTIVITY
     Dosage: 75 MG, 4X/DAY
     Route: 048

REACTIONS (4)
  - Product use in unapproved indication [Unknown]
  - Malaise [Not Recovered/Not Resolved]
  - Off label use [Unknown]
  - Intentional product use issue [Unknown]

NARRATIVE: CASE EVENT DATE: 201710
